FAERS Safety Report 5586096-2 (Version None)
Quarter: 2008Q1

REPORT INFORMATION
  Report Type: 
  Country: None (occurrence: None)
  Receive Date: 20080104
  Receipt Date: 20071220
  Transmission Date: 20080703
  Serious: No
  Sender: FDA-Public Use
  Company Number: 8028759

PATIENT

DRUGS (1)
  1. KEPPRA [Suspect]
     Dosage: 6000 MG /D

REACTIONS (1)
  - NO ADVERSE EVENT [None]
